FAERS Safety Report 7469689-7 (Version None)
Quarter: 2011Q2

REPORT INFORMATION
  Report Type: 
  Country: None (occurrence: None)
  Receive Date: 20110510
  Receipt Date: 20110503
  Transmission Date: 20111010
  Serious: Yes (Other)
  Sender: FDA-Public Use
  Company Number: US-BRISTOL-MYERS SQUIBB COMPANY-15717903

PATIENT
  Age: 60 Year
  Sex: Male

DRUGS (1)
  1. COUMADIN [Suspect]

REACTIONS (4)
  - MYOCARDIAL INFARCTION [None]
  - THROMBOSIS [None]
  - CEREBROVASCULAR ACCIDENT [None]
  - PULMONARY EMBOLISM [None]
